FAERS Safety Report 5451297-0 (Version None)
Quarter: 2007Q3

REPORT INFORMATION
  Report Type: 
  Country: None (occurrence: None)
  Receive Date: 20070911
  Receipt Date: 20070911
  Transmission Date: 20080115
  Serious: Yes (Death, Life-Threatening, Hospitalization)
  Sender: FDA-Public Use
  Company Number: None

PATIENT
  Age: 71 Year
  Sex: Male

DRUGS (2)
  1. WARFARIN SODIUM [Suspect]
     Dosage: PO
     Route: 048
  2. LOTREL [Concomitant]

REACTIONS (3)
  - FACIAL PAIN [None]
  - INTERNATIONAL NORMALISED RATIO DECREASED [None]
  - SUBARACHNOID HAEMORRHAGE [None]
